FAERS Safety Report 7929239-5 (Version None)
Quarter: 2011Q4

REPORT INFORMATION
  Report Type: 
  Country: None (occurrence: None)
  Receive Date: 20111121
  Receipt Date: 20111111
  Transmission Date: 20120403
  Serious: Yes (Hospitalization, Disabling)
  Sender: FDA-Public Use
  Company Number: US-BIOGENIDEC-2011BI042269

PATIENT
  Age: 64 Year
  Sex: Female
  Weight: 107 kg

DRUGS (11)
  1. TYSABRI [Suspect]
     Indication: MULTIPLE SCLEROSIS
     Route: 042
     Dates: start: 20081103
  2. KEFLEX [Concomitant]
     Route: 048
     Dates: start: 20110729
  3. AMBIEN [Concomitant]
     Route: 048
  4. SOMA [Concomitant]
     Route: 048
     Dates: start: 20110907
  5. PLAVIX [Concomitant]
     Route: 048
  6. ATIVAN [Concomitant]
     Route: 048
     Dates: start: 20110623
  7. VESICARE [Concomitant]
     Route: 048
     Dates: start: 20110911
  8. VICODIN [Concomitant]
     Route: 048
  9. ZOLOFT [Concomitant]
     Route: 048
  10. VICODIN [Concomitant]
     Route: 048
  11. OMEPRAZOLE [Concomitant]
     Route: 048
     Dates: start: 20110808

REACTIONS (2)
  - ATRIAL FIBRILLATION [None]
  - CHEST PAIN [None]
